FAERS Safety Report 6091840-4 (Version None)
Quarter: 2009Q1

REPORT INFORMATION
  Report Type: 
  Country: None (occurrence: None)
  Receive Date: 20090225
  Receipt Date: 20080731
  Transmission Date: 20090719
  Serious: No
  Sender: FDA-Public Use
  Company Number: A0740514A

PATIENT

DRUGS (2)
  1. VALTREX [Suspect]
  2. UNKNOWN [Concomitant]

REACTIONS (1)
  - HERPES ZOSTER [None]
